FAERS Safety Report 7596225-7 (Version None)
Quarter: 2011Q3

REPORT INFORMATION
  Report Type: 
  Country: None (occurrence: None)
  Receive Date: 20110707
  Receipt Date: 20110629
  Transmission Date: 20111222
  Serious: Yes (Other)
  Sender: FDA-Public Use
  Company Number: SG-ABBOTT-11P-141-0835323-00

PATIENT
  Age: 43 Year
  Sex: Female

DRUGS (1)
  1. CLARITHROMYCIN [Suspect]
     Indication: PRODUCT USED FOR UNKNOWN INDICATION

REACTIONS (3)
  - INSOMNIA [None]
  - PALPITATIONS [None]
  - RASH MACULO-PAPULAR [None]
